FAERS Safety Report 21269222 (Version 1)
Quarter: 2022Q3

REPORT INFORMATION
  Report Type: Spontaneous
  Country: FR (occurrence: FR)
  Receive Date: 20220830
  Receipt Date: 20220830
  Transmission Date: 20221027
  Serious: Yes (Hospitalization)
  Sender: FDA-Public Use
  Company Number: None

PATIENT
  Age: 68 Year
  Sex: Male
  Weight: 92 kg

DRUGS (3)
  1. PANTOPRAZOLE [Suspect]
     Active Substance: PANTOPRAZOLE
     Indication: Gastrointestinal haemorrhage
     Dosage: 40 MILLIGRAM DAILY;
     Route: 065
     Dates: start: 20220730
  2. LOVENOX [Suspect]
     Active Substance: ENOXAPARIN SODIUM
     Indication: Atrial fibrillation
     Dosage: 4000 IU (INTERNATIONAL UNIT) DAILY; 1X/D, 4,000 ANTI-XA IU/0.4 ML, THERAPY END DATE : NOT ASKED
     Route: 065
     Dates: start: 20220730
  3. IOBITRIDOL [Suspect]
     Active Substance: IOBITRIDOL
     Indication: Diagnostic procedure
     Dosage: 95 ML,  350(350 MG IODINE/ML)
     Route: 065
     Dates: start: 20220731, end: 20220731

REACTIONS (1)
  - Rash maculo-papular [Not Recovered/Not Resolved]

NARRATIVE: CASE EVENT DATE: 20220808
